FAERS Safety Report 26083923 (Version 1)
Quarter: 2025Q4

REPORT INFORMATION
  Report Type: Spontaneous
  Country: US (occurrence: None)
  Receive Date: 20251124
  Receipt Date: 20251124
  Transmission Date: 20260118
  Serious: Yes (Hospitalization, Other)
  Sender: APOTEX
  Company Number: US-APOTEX-2025AP032847

PATIENT
  Age: 10 Year
  Sex: Male

DRUGS (4)
  1. TEMOZOLOMIDE [Suspect]
     Active Substance: TEMOZOLOMIDE
     Indication: Astrocytoma malignant
     Dosage: 100 MILLIGRAM, QD
     Route: 065
     Dates: start: 2024, end: 2024
  2. TEMOZOLOMIDE [Suspect]
     Active Substance: TEMOZOLOMIDE
     Indication: Isocitrate dehydrogenase gene mutation
     Dosage: 160 MILLIGRAM, FOR 5 DAYS EVERY 6 WEEKS
  3. LOMUSTINE [Suspect]
     Active Substance: LOMUSTINE
     Indication: Astrocytoma malignant
     Dosage: 90 MILLIGRAM, SINGLE, EVERY 6 WEEKS
     Dates: start: 2024, end: 2024
  4. LOMUSTINE [Suspect]
     Active Substance: LOMUSTINE
     Indication: Isocitrate dehydrogenase gene mutation

REACTIONS (11)
  - Acute respiratory distress syndrome [Unknown]
  - Platelet toxicity [Unknown]
  - Pulmonary alveolar haemorrhage [Unknown]
  - Hypovolaemic shock [Unknown]
  - Gingival bleeding [Unknown]
  - Contusion [Unknown]
  - Haematuria [Unknown]
  - Epistaxis [Unknown]
  - Oxygen saturation decreased [Unknown]
  - Neutropenia [Unknown]
  - Thrombocytopenia [Unknown]

NARRATIVE: CASE EVENT DATE: 20240101
